FAERS Safety Report 6167164-3 (Version None)
Quarter: 2009Q2

REPORT INFORMATION
  Report Type: 
  Country: None (occurrence: None)
  Receive Date: 20090424
  Receipt Date: 20090417
  Transmission Date: 20091009
  Serious: Yes (Other)
  Sender: FDA-Public Use
  Company Number: US-ASTRAZENECA-2007UW03874

PATIENT
  Age: 41 Year
  Sex: Female
  Weight: 96.2 kg

DRUGS (7)
  1. SEROQUEL [Suspect]
     Indication: DEPRESSION
     Dosage: 100 TO 400 MG
     Route: 048
     Dates: start: 20030628
  2. SEROQUEL [Suspect]
     Indication: INSOMNIA
     Dosage: 100 TO 400 MG
     Route: 048
     Dates: start: 20030628
  3. SEROQUEL [Suspect]
     Indication: MIGRAINE
     Dosage: 100 TO 400 MG
     Route: 048
     Dates: start: 20030628
  4. CYMBALTA [Concomitant]
     Dates: start: 20060614
  5. REMERON [Concomitant]
     Dates: start: 20050101
  6. DEPAKOTE [Concomitant]
     Dates: start: 20060803
  7. MIRTAZAPINE [Concomitant]

REACTIONS (3)
  - LIMB INJURY [None]
  - NEUROPATHY PERIPHERAL [None]
  - TYPE 2 DIABETES MELLITUS [None]
